FAERS Safety Report 11815410 (Version 1)
Quarter: 2015Q4

REPORT INFORMATION
  Report Type: Other
  Country: DE (occurrence: DE)
  Receive Date: 20151209
  Receipt Date: 20151209
  Transmission Date: 20160305
  Serious: Yes (Hospitalization)
  Sender: FDA-Public Use
  Company Number: DE-MYLANLABS-2015M1042726

PATIENT

DRUGS (14)
  1. TAVOR [Concomitant]
     Active Substance: LORAZEPAM
     Dosage: 4 MG, UNK
     Route: 048
     Dates: start: 20120627
  2. ZYPREXA [Suspect]
     Active Substance: OLANZAPINE
     Dosage: 7.5 MG, QD
     Route: 048
     Dates: start: 20120623
  3. ZYPREXA [Suspect]
     Active Substance: OLANZAPINE
     Dosage: 10 MG, QD
     Route: 048
     Dates: start: 20120624, end: 20120629
  4. ORFIRIL [Suspect]
     Active Substance: VALPROIC ACID
     Dosage: 2000 MG, QD
     Route: 048
     Dates: start: 20120621, end: 20120701
  5. VOLTAREN [Suspect]
     Active Substance: DICLOFENAC SODIUM
     Dosage: 150 MG, QD
     Route: 048
     Dates: start: 20120625, end: 20120629
  6. CIPRAMIL                           /00582602/ [Suspect]
     Active Substance: CITALOPRAM HYDROBROMIDE
     Dosage: 10 MG, QD
     Route: 048
     Dates: start: 20120628, end: 20120701
  7. ORFIRIL [Suspect]
     Active Substance: VALPROIC ACID
     Dosage: 600 MG, UNK
     Route: 048
     Dates: start: 20120614
  8. ORFIRIL [Suspect]
     Active Substance: VALPROIC ACID
     Dosage: 1200 MG, QD
     Route: 048
     Dates: start: 20120615, end: 20120617
  9. VOLTAREN [Suspect]
     Active Substance: DICLOFENAC SODIUM
     Dosage: 75 MG, QD
     Route: 048
     Dates: start: 20120630
  10. TAVOR [Concomitant]
     Active Substance: LORAZEPAM
     Dosage: 5 MG, UNK
     Route: 048
     Dates: start: 20120628, end: 20120701
  11. PANTOPRAZOL [Suspect]
     Active Substance: PANTOPRAZOLE SODIUM
     Dosage: 60 MG, UNK
     Route: 048
     Dates: start: 20120628, end: 20120701
  12. ORFIRIL [Suspect]
     Active Substance: VALPROIC ACID
     Dosage: 1800 MG, QD
     Route: 048
     Dates: start: 20120619, end: 20120620
  13. ZYPREXA [Suspect]
     Active Substance: OLANZAPINE
     Dosage: 15 MG, QD
     Route: 048
     Dates: start: 20120630, end: 20130701
  14. ORFIRIL [Suspect]
     Active Substance: VALPROIC ACID
     Dosage: 1500 MG, QD
     Route: 048
     Dates: start: 20120618

REACTIONS (1)
  - Colitis [Recovering/Resolving]

NARRATIVE: CASE EVENT DATE: 20120630
